FAERS Safety Report 8287017-4 (Version None)
Quarter: 2012Q2

REPORT INFORMATION
  Report Type: 
  Country: None (occurrence: None)
  Receive Date: 20120416
  Receipt Date: 20120411
  Transmission Date: 20120825
  Serious: Yes (Hospitalization)
  Sender: FDA-Public Use
  Company Number: FR-SANOFI-AVENTIS-2012SA025131

PATIENT
  Age: 84 Year
  Sex: Female

DRUGS (9)
  1. BEROCCA C [Suspect]
     Indication: MAGNESIUM DEFICIENCY
     Route: 048
     Dates: end: 20120119
  2. BISOPROLOL FUMARATE [Concomitant]
  3. CALCIPARINE [Suspect]
     Dosage: INCREASED DOSE
     Route: 058
     Dates: start: 20120202
  4. ZESTRIL [Suspect]
     Dosage: STRENGTH; 5 MG
     Route: 048
     Dates: end: 20120124
  5. LASIX [Suspect]
     Dosage: STRENGTH; 40 MG
     Route: 048
     Dates: end: 20120125
  6. CALCIPARINE [Suspect]
     Route: 058
     Dates: start: 20111230, end: 20120123
  7. FENOFIBRATE [Suspect]
     Dosage: MICRONISED CAPSULE, STRENGTH; 200 MG
     Route: 048
     Dates: end: 20120124
  8. PYRIDOXINE HCL [Suspect]
     Indication: ASTHENIA
     Route: 048
     Dates: end: 20120119
  9. DIGOXIN [Concomitant]

REACTIONS (1)
  - HAEMATOMA [None]
